FAERS Safety Report 24711807 (Version 1)
Quarter: 2024Q4

REPORT INFORMATION
  Report Type: Spontaneous
  Country: US (occurrence: US)
  Receive Date: 20241209
  Receipt Date: 20241209
  Transmission Date: 20250115
  Serious: Yes (Other)
  Sender: COOPERSURGICAL
  Company Number: US-COOPERSURGICAL, INC.-2024CPS003764

PATIENT
  Age: 27 Year
  Sex: Female
  Weight: 153.29 kg

DRUGS (8)
  1. PARAGARD T 380A [Suspect]
     Active Substance: COPPER
     Indication: Contraception
     Dosage: UNK
     Route: 015
     Dates: start: 20161108
  2. MULTIPLE UNSPECIFIED MENTAL HEALTH MEDICATIONS [Concomitant]
  3. VRAYLAR [Concomitant]
     Active Substance: CARIPRAZINE
  4. CELEXA [Concomitant]
     Active Substance: CITALOPRAM HYDROBROMIDE
  5. BUSPAR [Concomitant]
     Active Substance: BUSPIRONE HYDROCHLORIDE
  6. HYDROXYZINE [Concomitant]
     Active Substance: HYDROXYZINE HYDROCHLORIDE
  7. TRAZODONE [Concomitant]
     Active Substance: TRAZODONE HYDROCHLORIDE
  8. UNSPECIFIED MRSA ANTIBIOTICS [Concomitant]
     Dosage: UNK
     Dates: start: 20161001

REACTIONS (10)
  - Reproductive complication associated with device [Not Recovered/Not Resolved]
  - Injury [Not Recovered/Not Resolved]
  - Device breakage [Not Recovered/Not Resolved]
  - Foreign body in reproductive tract [Not Recovered/Not Resolved]
  - Complication of device removal [Not Recovered/Not Resolved]
  - Depression [Not Recovered/Not Resolved]
  - Obesity [Unknown]
  - Pain [Recovered/Resolved]
  - Heavy menstrual bleeding [Unknown]
  - Abdominal pain lower [Recovered/Resolved]

NARRATIVE: CASE EVENT DATE: 20191201
